FAERS Safety Report 12795104 (Version 1)
Quarter: 2016Q3

REPORT INFORMATION
  Report Type: Spontaneous
  Country: US (occurrence: US)
  Receive Date: 20160929
  Receipt Date: 20160929
  Transmission Date: 20161109
  Serious: Yes (Hospitalization, Other)
  Sender: FDA-Public Use
  Company Number: US-GLAXOSMITHKLINE-US2016141702

PATIENT
  Age: 56 Year
  Sex: Male

DRUGS (4)
  1. ADVAIR DISKUS [Suspect]
     Active Substance: FLUTICASONE PROPIONATE\SALMETEROL XINAFOATE
     Indication: CHEST PAIN
  2. CEFUROXIME. [Concomitant]
     Active Substance: CEFUROXIME
  3. ADVAIR DISKUS [Suspect]
     Active Substance: FLUTICASONE PROPIONATE\SALMETEROL XINAFOATE
     Indication: OROPHARYNGEAL PAIN
     Dosage: 100/50, 1 PUFF(S), BID
     Route: 055
     Dates: start: 20121204, end: 20121218
  4. ADVAIR DISKUS [Suspect]
     Active Substance: FLUTICASONE PROPIONATE\SALMETEROL XINAFOATE
     Indication: RESPIRATORY TRACT CONGESTION

REACTIONS (14)
  - Barrett^s oesophagus [Not Recovered/Not Resolved]
  - Bronchitis [Unknown]
  - Cough [Recovered/Resolved]
  - Lung infection [Recovered/Resolved]
  - Stenosis [Recovering/Resolving]
  - Fine motor skill dysfunction [Recovering/Resolving]
  - Neoplasm malignant [Unknown]
  - Chronic obstructive pulmonary disease [Not Recovered/Not Resolved]
  - White blood cell count increased [Recovered/Resolved]
  - Product use issue [Recovered/Resolved]
  - Off label use [Recovered/Resolved]
  - Neuralgic amyotrophy [Not Recovered/Not Resolved]
  - Drug ineffective [Unknown]
  - Arthritis [Recovering/Resolving]

NARRATIVE: CASE EVENT DATE: 201212
